FAERS Safety Report 16758423 (Version 2)
Quarter: 2019Q3

REPORT INFORMATION
  Report Type: Report from Study
  Country: CA (occurrence: CA)
  Receive Date: 20190830
  Receipt Date: 20190830
  Transmission Date: 20191005
  Serious: Yes (Other)
  Sender: FDA-Public Use
  Company Number: CA-EISAI MEDICAL RESEARCH-EC-2019-057019

PATIENT
  Sex: Male

DRUGS (11)
  1. AVAPRO [Concomitant]
     Active Substance: IRBESARTAN
  2. FENO-MICRO [Concomitant]
  3. SANDOZ-METFORMIN [Concomitant]
  4. MOMETASONE NASAL SPRAY [Concomitant]
     Active Substance: MOMETASONE
  5. LENVIMA [Suspect]
     Active Substance: LENVATINIB
     Indication: HEPATOCELLULAR CARCINOMA
     Route: 048
     Dates: start: 20190519, end: 20190603
  6. APO-AMLODIPINE [Concomitant]
     Active Substance: AMLODIPINE BESYLATE
  7. DICETEL [Concomitant]
     Active Substance: PINAVERIUM BROMIDE
  8. TECTA [Concomitant]
     Active Substance: PANTOPRAZOLE MAGNESIUM
  9. CRESTOR [Concomitant]
     Active Substance: ROSUVASTATIN CALCIUM
  10. HYDRO [Concomitant]
  11. NOVO-QUININE [Concomitant]

REACTIONS (6)
  - Renal injury [Unknown]
  - Dysphonia [Not Recovered/Not Resolved]
  - Hypotension [Not Recovered/Not Resolved]
  - Decreased appetite [Not Recovered/Not Resolved]
  - Urticaria [Unknown]
  - Liver injury [Unknown]

NARRATIVE: CASE EVENT DATE: 2019
